FAERS Safety Report 10174519 (Version 1)
Quarter: 2014Q2

REPORT INFORMATION
  Report Type: Spontaneous
  Country: US (occurrence: None)
  Receive Date: 20140416
  Receipt Date: 20140416
  Transmission Date: 20141212
  Serious: Yes (Hospitalization)
  Sender: FDA-Public Use
  Company Number: 163-POMAL-14015002

PATIENT
  Age: 65 Year
  Sex: Male

DRUGS (3)
  1. POMALYST [Suspect]
     Indication: PLASMA CELL MYELOMA
     Dosage: 21 IN 28 D
     Route: 048
     Dates: start: 201302, end: 201401
  2. ANTIDIARRHEAL (BERUSANOL) (UNKNOWN) [Concomitant]
  3. ANTI EMETIC (UNKNOWN) [Concomitant]

REACTIONS (1)
  - Thrombocytopenia [None]
